FAERS Safety Report 7396425-5 (Version None)
Quarter: 2011Q1

REPORT INFORMATION
  Report Type: 
  Country: None (occurrence: None)
  Receive Date: 20110331
  Receipt Date: 20110331
  Transmission Date: 20110831
  Serious: Yes (Hospitalization)
  Sender: FDA-Public Use
  Company Number: None

PATIENT
  Sex: Female
  Weight: 78.01 kg

DRUGS (1)
  1. ALIMTA [Suspect]
     Dosage: 940 MG

REACTIONS (3)
  - DISCOMFORT [None]
  - PAIN [None]
  - STENT MALFUNCTION [None]
